FAERS Safety Report 12674390 (Version 1)
Quarter: 2016Q3

REPORT INFORMATION
  Report Type: Spontaneous
  Country: US (occurrence: US)
  Receive Date: 20160822
  Receipt Date: 20160822
  Transmission Date: 20161109
  Serious: No
  Sender: FDA-Public Use
  Company Number: US-BEH-2015057095

PATIENT
  Sex: Male
  Weight: 133.81 kg

DRUGS (23)
  1. ZEMAIRA [Suspect]
     Active Substance: .ALPHA.1-PROTEINASE INHIBITOR HUMAN
     Indication: ALPHA-1 ANTI-TRYPSIN DEFICIENCY
     Route: 042
     Dates: start: 20081020
  2. LEXAPRO [Concomitant]
     Active Substance: ESCITALOPRAM OXALATE
  3. ACTOS [Concomitant]
     Active Substance: PIOGLITAZONE HYDROCHLORIDE
  4. ADULT ASPIRIN [Concomitant]
  5. LMX [Concomitant]
     Active Substance: LIDOCAINE
  6. SYMBICORT [Concomitant]
     Active Substance: BUDESONIDE\FORMOTEROL FUMARATE DIHYDRATE
  7. DIGOXIN. [Concomitant]
     Active Substance: DIGOXIN
  8. VITAMIN D [Concomitant]
     Active Substance: CHOLECALCIFEROL
  9. IPRATROPIUM BR [Concomitant]
  10. ALBUTEROL. [Concomitant]
     Active Substance: ALBUTEROL
  11. SIMVASTATIN. [Concomitant]
     Active Substance: SIMVASTATIN
  12. SINGULAIR [Concomitant]
     Active Substance: MONTELUKAST SODIUM
  13. SODIUM CHLORIDE 0.9% [Concomitant]
     Active Substance: SODIUM CHLORIDE
  14. ALPRAZOLAM. [Concomitant]
     Active Substance: ALPRAZOLAM
  15. ADVIL [Concomitant]
     Active Substance: IBUPROFEN
  16. DIPHENHYDRAMINE. [Concomitant]
     Active Substance: DIPHENHYDRAMINE
  17. EPIPEN [Concomitant]
     Active Substance: EPINEPHRINE
  18. VERAPAMIL [Concomitant]
     Active Substance: VERAPAMIL HYDROCHLORIDE
  19. PROVENTIL [Concomitant]
     Active Substance: ALBUTEROL
  20. IBUPROFEN. [Concomitant]
     Active Substance: IBUPROFEN
  21. INDOMETHACIN. [Concomitant]
     Active Substance: INDOMETHACIN
  22. FLOVENT [Concomitant]
     Active Substance: FLUTICASONE PROPIONATE
  23. XANAX [Concomitant]
     Active Substance: ALPRAZOLAM

REACTIONS (1)
  - Urinary tract infection [Unknown]
